FAERS Safety Report 6568111-2 (Version None)
Quarter: 2010Q1

REPORT INFORMATION
  Report Type: 
  Country: None (occurrence: None)
  Receive Date: 20100129
  Receipt Date: 20100119
  Transmission Date: 20100710
  Serious: Yes (Other)
  Sender: FDA-Public Use
  Company Number: TRP_06684_2009

PATIENT
  Sex: Female

DRUGS (6)
  1. RIBAPAK (NOT SPECIFIED) [Suspect]
     Indication: HEPATITIS C
     Dosage: 600 MG BID
     Dates: start: 20091028
  2. PEGASYS [Suspect]
     Indication: HEPATITIS C
     Dosage: 180 UG 1X/WEEK)
     Dates: start: 20091028
  3. TORADOL [Suspect]
     Indication: DRUG USE FOR UNKNOWN INDICATION
  4. CYMBALTA [Concomitant]
  5. VICODIN [Concomitant]
  6. UNSPECIFIED HIV MEDICATIONS [Concomitant]

REACTIONS (14)
  - BEDRIDDEN [None]
  - CHEST PAIN [None]
  - DIARRHOEA [None]
  - DYSPNOEA [None]
  - EXPRESSIVE LANGUAGE DISORDER [None]
  - FEELING ABNORMAL [None]
  - INSOMNIA [None]
  - MUSCULOSKELETAL STIFFNESS [None]
  - NIGHT SWEATS [None]
  - PAIN IN EXTREMITY [None]
  - SINUS HEADACHE [None]
  - TOOTH DISORDER [None]
  - VISION BLURRED [None]
  - VOMITING [None]
